FAERS Safety Report 6124412-3 (Version None)
Quarter: 2009Q1

REPORT INFORMATION
  Report Type: 
  Country: None (occurrence: None)
  Receive Date: 20090319
  Receipt Date: 20090314
  Transmission Date: 20090719
  Serious: Yes (Hospitalization)
  Sender: FDA-Public Use
  Company Number: NL-ASTRAZENECA-2009AC00869

PATIENT
  Age: 44 Year
  Sex: Female

DRUGS (4)
  1. SEROQUEL [Suspect]
     Dosage: UP TO 8000 MG PER DAY
     Route: 048
  2. DEPAKENE [Concomitant]
     Route: 048
  3. METHYLPHENIDATE [Concomitant]
     Route: 048
  4. TRUXAL [Concomitant]
     Route: 048

REACTIONS (2)
  - DRUG ABUSE [None]
  - OVERDOSE [None]
